FAERS Safety Report 9057568 (Version 1)
Quarter: 2013Q1

REPORT INFORMATION
  Report Type: Spontaneous
  Country: US (occurrence: None)
  Receive Date: 20130204
  Receipt Date: 20130204
  Transmission Date: 20140127
  Serious: Yes (Hospitalization)
  Sender: FDA-Public Use
  Company Number: None

PATIENT
  Age: 77 Year
  Sex: Female
  Weight: 53 kg

DRUGS (15)
  1. METOPROLOL [Suspect]
     Indication: VENTRICULAR TACHYCARDIA
     Route: 048
  2. FLUTICASONE [Concomitant]
  3. ALBUTEROL [Concomitant]
  4. CLARINEX [Concomitant]
  5. UBIQUINONE/COENZYME Q10 [Concomitant]
  6. OMEGA 3 [Concomitant]
  7. MAG OX [Concomitant]
  8. TRETINOIN [Concomitant]
  9. CA VITD [Concomitant]
  10. MVI [Concomitant]
  11. ZOLEDRONIC ACID [Concomitant]
  12. CHELECALCIFEROL [Concomitant]
  13. ASA [Concomitant]
  14. SYNTHROID [Concomitant]
  15. ATORVASTATIN [Suspect]

REACTIONS (4)
  - Syncope [None]
  - Presyncope [None]
  - Pneumothorax [None]
  - Liver function test abnormal [None]
